FAERS Safety Report 7278244-3 (Version None)
Quarter: 2011Q1

REPORT INFORMATION
  Report Type: 
  Country: None (occurrence: None)
  Receive Date: 20110131
  Receipt Date: 20110119
  Transmission Date: 20110831
  Serious: Yes (Life-Threatening, Hospitalization)
  Sender: FDA-Public Use
  Company Number: MIN-00688

PATIENT
  Age: 16 Year
  Sex: Male

DRUGS (1)
  1. MINOCYCLINE, 50MG [Suspect]
     Indication: ACNE
     Dosage: 50MG TWICE DAILY, ORAL
     Route: 048

REACTIONS (6)
  - LYMPHADENOPATHY [None]
  - DRUG HYPERSENSITIVITY [None]
  - BLOOD ALKALINE PHOSPHATASE INCREASED [None]
  - BLOOD AMYLASE INCREASED [None]
  - STEVENS-JOHNSON SYNDROME [None]
  - PAROTITIS [None]
